FAERS Safety Report 15132932 (Version 1)
Quarter: 2018Q3

REPORT INFORMATION
  Report Type: Spontaneous
  Country: US (occurrence: US)
  Receive Date: 20180712
  Receipt Date: 20180712
  Transmission Date: 20181010
  Serious: No
  Sender: FDA-Public Use
  Company Number: US-GLENMARK PHARMACEUTICALS-2017GMK030089

PATIENT

DRUGS (1)
  1. BETAMETHASONE DIPROPIONATE. [Suspect]
     Active Substance: BETAMETHASONE DIPROPIONATE
     Indication: PSORIASIS
     Dosage: UNK, BID
     Route: 065
     Dates: start: 20171031, end: 20171211

REACTIONS (7)
  - Psoriasis [Unknown]
  - Drug ineffective [Unknown]
  - Burning sensation [Unknown]
  - Pruritus [Unknown]
  - Scratch [Unknown]
  - Condition aggravated [Unknown]
  - Skin haemorrhage [Unknown]
